FAERS Safety Report 15715999 (Version 1)
Quarter: 2018Q4

REPORT INFORMATION
  Report Type: Spontaneous
  Country: US (occurrence: US)
  Receive Date: 20181213
  Receipt Date: 20181213
  Transmission Date: 20190205
  Serious: Yes (Other)
  Sender: FDA-Public Use
  Company Number: US-DRREDDYS-USA/USA/18/0098040

PATIENT
  Sex: Female

DRUGS (9)
  1. MONTELUKAST [Concomitant]
     Active Substance: MONTELUKAST SODIUM
     Indication: PRURITUS
     Route: 065
  2. METFORMIN [Concomitant]
     Active Substance: METFORMIN HYDROCHLORIDE
     Indication: DIABETES MELLITUS
     Route: 065
  3. OMEPRAZOLE. [Suspect]
     Active Substance: OMEPRAZOLE
     Indication: PRODUCT USED FOR UNKNOWN INDICATION
     Route: 065
  4. LISINOPRIL. [Concomitant]
     Active Substance: LISINOPRIL
     Indication: HYPERTENSION
     Route: 065
  5. ATORVASTATIN [Concomitant]
     Active Substance: ATORVASTATIN
     Indication: BLOOD CHOLESTEROL
     Route: 065
  6. TARCEVA [Concomitant]
     Active Substance: ERLOTINIB HYDROCHLORIDE
     Indication: DIABETES MELLITUS
     Dosage: DOSE: 30 UNITS, AT NIGHT
     Route: 065
  7. PREDNISONE. [Concomitant]
     Active Substance: PREDNISONE
     Indication: PRURITUS
     Route: 065
  8. FAMOTIDINE. [Concomitant]
     Active Substance: FAMOTIDINE
     Indication: PRURITUS
     Route: 065
  9. HYDROXYZINE [Concomitant]
     Active Substance: HYDROXYZINE HYDROCHLORIDE
     Indication: PRURITUS
     Route: 065

REACTIONS (24)
  - Dizziness [Unknown]
  - Cough [Unknown]
  - Urticaria [Unknown]
  - Muscle spasms [Unknown]
  - Dry skin [Unknown]
  - Urinary tract infection [Unknown]
  - Myalgia [Unknown]
  - Paraesthesia [Unknown]
  - Pyrexia [Unknown]
  - Vision blurred [Unknown]
  - Rash macular [Recovered/Resolved]
  - Nausea [Unknown]
  - Dry mouth [Unknown]
  - Dermatitis [Unknown]
  - Drug hypersensitivity [Unknown]
  - White blood cell count decreased [Unknown]
  - Arthralgia [Unknown]
  - Photosensitivity reaction [Unknown]
  - Rash [Not Recovered/Not Resolved]
  - Product complaint [Unknown]
  - Chest pain [Unknown]
  - Hyperhidrosis [Unknown]
  - Drug intolerance [Unknown]
  - Hypertension [Unknown]
